FAERS Safety Report 8251432-5 (Version None)
Quarter: 2012Q2

REPORT INFORMATION
  Report Type: 
  Country: None (occurrence: None)
  Receive Date: 20120402
  Receipt Date: 20120329
  Transmission Date: 20120825
  Serious: Yes (Other)
  Sender: FDA-Public Use
  Company Number: US-BAYER-2012-031156

PATIENT
  Age: 35 Year
  Sex: Female

DRUGS (1)
  1. YAZ [Suspect]
     Dosage: UNK
     Route: 048
     Dates: start: 20070601, end: 20070801

REACTIONS (6)
  - EMOTIONAL DISTRESS [None]
  - FEAR OF DEATH [None]
  - PULMONARY EMBOLISM [None]
  - NERVOUSNESS [None]
  - DEPRESSION [None]
  - INJURY [None]
